FAERS Safety Report 5002963-2 (Version None)
Quarter: 2006Q2

REPORT INFORMATION
  Report Type: 
  Country: None (occurrence: None)
  Receive Date: 20060516
  Receipt Date: 20060510
  Transmission Date: 20061013
  Serious: Yes (Other)
  Sender: FDA-Public Use
  Company Number: AU-GLAXOSMITHKLINE-B0423444A

PATIENT
  Age: 18 Year
  Sex: Male

DRUGS (1)
  1. NICABATE CQ 2MG GUM [Suspect]
     Dosage: 2MG PER DAY
     Route: 002
     Dates: start: 20060510, end: 20060510

REACTIONS (5)
  - DYSPNOEA [None]
  - ERYTHEMA [None]
  - PARAESTHESIA [None]
  - SWELLING FACE [None]
  - THROAT TIGHTNESS [None]
